FAERS Safety Report 5606596-6 (Version None)
Quarter: 2008Q1

REPORT INFORMATION
  Report Type: 
  Country: None (occurrence: None)
  Receive Date: 20080129
  Receipt Date: 20080122
  Transmission Date: 20080703
  Serious: Yes (Hospitalization)
  Sender: FDA-Public Use
  Company Number: CA-ASTRAZENECA-2008UW01828

PATIENT
  Age: 67 Year
  Sex: Male

DRUGS (8)
  1. CRESTOR [Suspect]
     Indication: BLOOD CHOLESTEROL INCREASED
     Route: 048
     Dates: start: 20070601, end: 20080101
  2. KALETRA [Concomitant]
  3. LAMIVUDINE [Concomitant]
  4. NEVIRAPINE [Concomitant]
  5. CLOPIDOGREL [Concomitant]
  6. FENOFIBRATE [Concomitant]
  7. RAMIPRIL [Concomitant]
  8. METOPROLOL TARTRATE [Concomitant]

REACTIONS (3)
  - BLOOD CREATINE PHOSPHOKINASE [None]
  - BLOOD CREATINE PHOSPHOKINASE INCREASED [None]
  - CONVULSION [None]
